FAERS Safety Report 5893117-6 (Version None)
Quarter: 2008Q3

REPORT INFORMATION
  Report Type: 
  Country: None (occurrence: None)
  Receive Date: 20080923
  Receipt Date: 20070813
  Transmission Date: 20090109
  Serious: No
  Sender: FDA-Public Use
  Company Number: US-ASTRAZENECA-2007UW19504

PATIENT

DRUGS (2)
  1. SEROQUEL [Suspect]
     Route: 048
  2. REQUIP [Suspect]

REACTIONS (1)
  - RESTLESS LEGS SYNDROME [None]
